FAERS Safety Report 7977382-7 (Version None)
Quarter: 2011Q4

REPORT INFORMATION
  Report Type: 
  Country: None (occurrence: None)
  Receive Date: 20111213
  Receipt Date: 20111117
  Transmission Date: 20120403
  Serious: Yes (Hospitalization)
  Sender: FDA-Public Use
  Company Number: PHHY2011CH106890

PATIENT
  Age: 62 Year
  Sex: Female

DRUGS (1)
  1. AREDIA [Suspect]
     Dosage: UNK UKN, UNK

REACTIONS (8)
  - OEDEMA PERIPHERAL [None]
  - CAPILLARY FRAGILITY INCREASED [None]
  - RASH [None]
  - NECROTISING FASCIITIS [None]
  - CELLULITIS [None]
  - INFLAMMATORY MARKER INCREASED [None]
  - PAIN IN EXTREMITY [None]
  - INFUSION SITE EXTRAVASATION [None]
